FAERS Safety Report 10022026 (Version 2)
Quarter: 2013Q4

REPORT INFORMATION
  Report Type: Spontaneous
  Country: US (occurrence: None)
  Receive Date: 20131206
  Receipt Date: 20131231
  Transmission Date: 20140711
  Serious: Yes (Other)
  Sender: FDA-Public Use
  Company Number: AUR-APL-2013-09916

PATIENT
  Age: 33 Year
  Sex: Female
  Weight: 190 kg

DRUGS (2)
  1. LEVETIRACETAM [Suspect]
     Indication: EPILEPSY
     Dosage: 2 IN MORNING AND 3 IN NIGHT
     Dates: start: 20131020
  2. KEPPRA (LEVETIRACETAM) [Concomitant]

REACTIONS (4)
  - Convulsion [None]
  - Product substitution issue [None]
  - Loss of consciousness [None]
  - Petit mal epilepsy [None]
